FAERS Safety Report 10215048 (Version 5)
Quarter: 2014Q3

REPORT INFORMATION
  Report Type: Spontaneous
  Country: US (occurrence: US)
  Receive Date: 20140603
  Receipt Date: 20140919
  Transmission Date: 20150326
  Serious: Yes (Hospitalization, Disabling, Other)
  Sender: FDA-Public Use
  Company Number: US-009507513-1205USA01103

PATIENT
  Sex: Female
  Weight: 71.2 kg

DRUGS (3)
  1. FOSAMAX [Suspect]
     Active Substance: ALENDRONATE SODIUM
     Indication: OSTEOPOROSIS
     Route: 048
     Dates: start: 20060324, end: 201003
  2. ALENDRONATE SODIUM. [Suspect]
     Active Substance: ALENDRONATE SODIUM
     Dosage: 70 MG, UNK
     Dates: start: 20090910, end: 20100220
  3. FOSAMAX [Suspect]
     Active Substance: ALENDRONATE SODIUM
     Indication: OSTEOPOROSIS
     Dosage: 70 MG, UNK
     Route: 048
     Dates: start: 200002, end: 201003

REACTIONS (29)
  - Intramedullary rod insertion [Recovering/Resolving]
  - Ostectomy [Unknown]
  - Femur fracture [Recovered/Resolved]
  - Varicose vein operation [Unknown]
  - Bunion operation [Unknown]
  - Internal fixation of fracture [Recovering/Resolving]
  - Cholecystectomy [Unknown]
  - Adverse event [Unknown]
  - Deep vein thrombosis [Unknown]
  - Arthralgia [Unknown]
  - Osteoarthritis [Unknown]
  - Cataract [Unknown]
  - Drug ineffective [Unknown]
  - Femoral neck fracture [Recovering/Resolving]
  - Femur fracture [Recovering/Resolving]
  - Neurectomy [Unknown]
  - Migraine [Unknown]
  - Drug tolerance decreased [Unknown]
  - Back pain [Unknown]
  - Low turnover osteopathy [Unknown]
  - Spinal compression fracture [Unknown]
  - Raynaud^s phenomenon [Unknown]
  - Osteoporosis [Unknown]
  - Stress fracture [Unknown]
  - Hypothyroidism [Unknown]
  - Hypoglycaemia [Unknown]
  - Intramedullary rod insertion [Recovered/Resolved]
  - Cataract operation [Unknown]
  - Arthropathy [Unknown]

NARRATIVE: CASE EVENT DATE: 200505
